FAERS Safety Report 23466427 (Version 1)
Quarter: 2024Q1

REPORT INFORMATION
  Report Type: Report from Study
  Country: US (occurrence: None)
  Receive Date: 20240201
  Receipt Date: 20240201
  Transmission Date: 20240410
  Serious: Yes (Hospitalization)
  Sender: FDA-Public Use
  Company Number: 2024A020241

PATIENT
  Sex: Female
  Weight: 64.8 kg

DRUGS (1)
  1. CALQUENCE [Suspect]
     Active Substance: ACALABRUTINIB
     Indication: Breast cancer female
     Route: 048

REACTIONS (3)
  - Blood sodium decreased [Unknown]
  - Fall [Unknown]
  - Diarrhoea [Unknown]
